FAERS Safety Report 6869346-1 (Version None)
Quarter: 2010Q3

REPORT INFORMATION
  Report Type: 
  Country: None (occurrence: None)
  Receive Date: 20100722
  Receipt Date: 20080728
  Transmission Date: 20110219
  Serious: Yes (Other)
  Sender: FDA-Public Use
  Company Number: US-PFIZER INC-2008063195

PATIENT
  Sex: Male
  Weight: 59.09 kg

DRUGS (6)
  1. CHANTIX [Suspect]
     Indication: EX-TOBACCO USER
     Dates: start: 20080715, end: 20080728
  2. ANTIHYPERTENSIVES [Concomitant]
  3. WARFARIN SODIUM [Concomitant]
  4. ELAVIL [Concomitant]
  5. XANAX [Concomitant]
  6. NORCO [Concomitant]

REACTIONS (8)
  - ANXIETY [None]
  - DEPRESSION [None]
  - DYSURIA [None]
  - EATING DISORDER [None]
  - GASTRIC DISORDER [None]
  - INSOMNIA [None]
  - MALAISE [None]
  - MUSCLE SPASMS [None]
